FAERS Safety Report 21803380 (Version 1)
Quarter: 2023Q1

REPORT INFORMATION
  Report Type: Report from Study
  Country: BR (occurrence: BR)
  Receive Date: 20230101
  Receipt Date: 20230101
  Transmission Date: 20230418
  Serious: Yes (Death)
  Sender: FDA-Public Use
  Company Number: BR-002147023-NVSC2022BR210402

PATIENT
  Age: 46 Year
  Sex: Female

DRUGS (1)
  1. KISQALI [Suspect]
     Active Substance: RIBOCICLIB
     Indication: Product used for unknown indication
     Dosage: UNK (IN THE MORNING FOR 21 DAYS IN A CYCLE , AND A PAUS E FOR 7 DAYS)
     Route: 065
     Dates: start: 20220901, end: 20221020

REACTIONS (4)
  - Cardiac arrest [Fatal]
  - Abdominal distension [Not Recovered/Not Resolved]
  - Decreased immune responsiveness [Unknown]
  - Decreased appetite [Recovering/Resolving]

NARRATIVE: CASE EVENT DATE: 20221218
